FAERS Safety Report 21246991 (Version 2)
Quarter: 2022Q3

REPORT INFORMATION
  Report Type: Report from Study
  Country: CZ (occurrence: CZ)
  Receive Date: 20220824
  Receipt Date: 20220907
  Transmission Date: 20221026
  Serious: Yes (Hospitalization)
  Sender: FDA-Public Use
  Company Number: CZ-ABBVIE-22K-217-4513133-00

PATIENT
  Age: 15 Year
  Sex: Female
  Weight: 69 kg

DRUGS (3)
  1. HUMIRA [Suspect]
     Active Substance: ADALIMUMAB
     Indication: Juvenile idiopathic arthritis
     Route: 058
     Dates: start: 20210709
  2. METHOTREXATE SODIUM [Suspect]
     Active Substance: METHOTREXATE SODIUM
     Indication: Juvenile idiopathic arthritis
     Dosage: 20 MG 1X A WEEK
     Route: 065
     Dates: start: 20200814
  3. FOLIC ACID [Concomitant]
     Active Substance: FOLIC ACID
     Indication: Vitamin supplementation
     Dates: start: 20200814

REACTIONS (3)
  - Bone lesion [Recovered/Resolved]
  - Bone marrow oedema [Recovered/Resolved]
  - Chondroblastoma [Recovered/Resolved]

NARRATIVE: CASE EVENT DATE: 20220304
